FAERS Safety Report 5070368-4 (Version None)
Quarter: 2006Q3

REPORT INFORMATION
  Report Type: 
  Country: None (occurrence: None)
  Receive Date: 20060731
  Receipt Date: 20060718
  Transmission Date: 20061208
  Serious: Yes (Disabling, Other)
  Sender: FDA-Public Use
  Company Number: 2006084918

PATIENT
  Age: 68 Year
  Sex: Male

DRUGS (2)
  1. CABERGOLINE [Suspect]
     Indication: RESTLESS LEGS SYNDROME
     Dosage: 2 MG (2 MG, 1 IN 1 D), ORAL
     Route: 048
     Dates: start: 20051019
  2. TEMAZEPAM [Concomitant]

REACTIONS (3)
  - MOBILITY DECREASED [None]
  - OEDEMA [None]
  - WEIGHT INCREASED [None]
